FAERS Safety Report 11856839 (Version 2)
Quarter: 2016Q2

REPORT INFORMATION
  Report Type: Report from Study
  Country: BR (occurrence: BR)
  Receive Date: 20151221
  Receipt Date: 20160411
  Transmission Date: 20160815
  Serious: Yes (Hospitalization, Other)
  Sender: FDA-Public Use
  Company Number: BR-BAYER-2015-487742

PATIENT
  Sex: Female

DRUGS (1)
  1. BETAFERON [Suspect]
     Active Substance: INTERFERON BETA-1B
     Indication: MULTIPLE SCLEROSIS
     Dosage: 9800 IU, TIW
     Route: 058
     Dates: end: 2015

REACTIONS (6)
  - Injection site pain [Recovered/Resolved]
  - Product use issue [None]
  - Injection site discolouration [Not Recovered/Not Resolved]
  - Injection site ulcer [Recovered/Resolved]
  - Hospitalisation [None]
  - Chills [Recovered/Resolved]
